FAERS Safety Report 11749913 (Version 2)
Quarter: 2015Q4

REPORT INFORMATION
  Report Type: Report from Study
  Country: SG (occurrence: SG)
  Receive Date: 20151118
  Receipt Date: 20151130
  Transmission Date: 20160304
  Serious: Yes (Death)
  Sender: FDA-Public Use
  Company Number: SG-PFIZER INC-2015380837

PATIENT
  Age: 44 Year
  Sex: Female
  Weight: 56 kg

DRUGS (1)
  1. PALBOCICLIB [Suspect]
     Active Substance: PALBOCICLIB
     Indication: BREAST CANCER METASTATIC
     Dosage: 125 MG, DAILY
     Route: 048
     Dates: start: 20151020, end: 20151023

REACTIONS (3)
  - Breast cancer metastatic [Fatal]
  - Disease progression [Fatal]
  - Pleural effusion [Not Recovered/Not Resolved]

NARRATIVE: CASE EVENT DATE: 20151023
